FAERS Safety Report 10362388 (Version 1)
Quarter: 2014Q1

REPORT INFORMATION
  Report Type: Spontaneous
  Country: US (occurrence: None)
  Receive Date: 20140306
  Receipt Date: 20140306
  Transmission Date: 20141002
  Serious: Yes (Hospitalization)
  Sender: FDA-Public Use
  Company Number: 163-21880-13061029

PATIENT
  Age: 81 Year
  Sex: Female

DRUGS (8)
  1. REVLIMID (LENALIDOMIDE) (5 MILLIGRAM, CAPSULES) [Suspect]
     Indication: MYELODYSPLASTIC SYNDROME
     Dosage: 5 MG, 21 IN 21 D, PO
     Route: 048
     Dates: start: 20111208, end: 2012
  2. AZITHROMYCIN (AZITHROMYCIN) (UNKNOWN) [Concomitant]
  3. BENADRYL (DESENTOL) (UNKNOWN) [Concomitant]
  4. CHERATUSSIN AC (CHERATUSSIN AC) (UNKNOWN) [Concomitant]
  5. LEVOTHYROXINE SODIUM (LEVOTHYROXINE SODIUM) (UNKNOWN) [Concomitant]
  6. MUCINEX (GUAIFENESIN) (UNKNOWN) [Concomitant]
  7. PREDNISONE (PREDNISONE) (UNKNOWN) [Concomitant]
  8. TOPICORT (DESOXIMETASONE) (UNKNOWN) [Concomitant]

REACTIONS (2)
  - Infectious colitis [None]
  - Constipation [None]
